FAERS Safety Report 10309997 (Version 1)
Quarter: 2014Q3

REPORT INFORMATION
  Report Type: Spontaneous
  Country: US (occurrence: None)
  Receive Date: 20140715
  Receipt Date: 20140715
  Transmission Date: 20150326
  Serious: No
  Sender: FDA-Public Use
  Company Number: None

PATIENT
  Age: 26 Year
  Sex: Female
  Weight: 61.24 kg

DRUGS (1)
  1. MIRENA [Suspect]
     Active Substance: LEVONORGESTREL
     Indication: CONTRACEPTION
     Dates: start: 20140714

REACTIONS (12)
  - Abdominal discomfort [None]
  - Adnexa uteri pain [None]
  - Abdominal distension [None]
  - Back pain [None]
  - Vaginal haemorrhage [None]
  - Anxiety [None]
  - Fatigue [None]
  - Acne cystic [None]
  - Dizziness [None]
  - Weight increased [None]
  - Dyspareunia [None]
  - Alopecia [None]

NARRATIVE: CASE EVENT DATE: 20140714
